FAERS Safety Report 17774189 (Version 1)
Quarter: 2020Q2

REPORT INFORMATION
  Report Type: Report from Study
  Country: US (occurrence: US)
  Receive Date: 20200513
  Receipt Date: 20200513
  Transmission Date: 20200714
  Serious: Yes (Hospitalization, Other)
  Sender: FDA-Public Use
  Company Number: US-ROCHE-2594096

PATIENT
  Age: 21 Year
  Sex: Male

DRUGS (6)
  1. PROGRAF [Suspect]
     Active Substance: TACROLIMUS
     Indication: PRODUCT USED FOR UNKNOWN INDICATION
     Route: 048
  2. RAPAMUNE [Concomitant]
     Active Substance: SIROLIMUS
  3. MUCINEX [Suspect]
     Active Substance: GUAIFENESIN
     Indication: PRODUCT USED FOR UNKNOWN INDICATION
     Route: 065
  4. CIPROFLOXACIN. [Concomitant]
     Active Substance: CIPROFLOXACIN
  5. CELLCEPT [Suspect]
     Active Substance: MYCOPHENOLATE MOFETIL\MYCOPHENOLATE MOFETIL HYDROCHLORIDE
     Indication: PRODUCT USED FOR UNKNOWN INDICATION
     Route: 065
  6. PREDNISONE. [Concomitant]
     Active Substance: PREDNISONE

REACTIONS (10)
  - Portal vein thrombosis [Unknown]
  - Tremor [Unknown]
  - Headache [Unknown]
  - Gastrointestinal haemorrhage [Recovered/Resolved]
  - COVID-19 [Recovered/Resolved]
  - Abdominal discomfort [Unknown]
  - Cholangitis [Unknown]
  - Portal hypertension [Unknown]
  - Visual impairment [Unknown]
  - Varices oesophageal [Unknown]

NARRATIVE: CASE EVENT DATE: 202002
